FAERS Safety Report 22282993 (Version 5)
Quarter: 2023Q2

REPORT INFORMATION
  Report Type: Spontaneous
  Country: FR (occurrence: FR)
  Receive Date: 20230504
  Receipt Date: 20230605
  Transmission Date: 20230721
  Serious: Yes (Other)
  Sender: FDA-Public Use
  Company Number: FR-BRISTOL-MYERS SQUIBB COMPANY-2023-053081

PATIENT
  Age: 80 Year
  Sex: Male

DRUGS (7)
  1. AZACITIDINE [Suspect]
     Active Substance: AZACITIDINE
     Indication: Blastic plasmacytoid dendritic cell neoplasia
     Dosage: 75 MILLIGRAM/SQ.METER, QD, 7D/CYCIE
     Route: 065
  2. AZACITIDINE [Suspect]
     Active Substance: AZACITIDINE
     Dosage: 75 MILLIGRAM/SQ. METER, QD, REDUCED TO 5D
     Route: 065
  3. VENETOCLAX [Suspect]
     Active Substance: VENETOCLAX
     Indication: Blastic plasmacytoid dendritic cell neoplasia
     Dosage: 50-300 MG/D/28D/C WERE GIVEN FROM C1
     Route: 065
  4. VENETOCLAX [Suspect]
     Active Substance: VENETOCLAX
     Dosage: 200 MILLIGRAM, QD, AFTER C4 REDUCED TO 21
     Route: 065
  5. VENETOCLAX [Suspect]
     Active Substance: VENETOCLAX
     Dosage: 200 MILLIGRAM, QD, 200MG/DAY FROM C2
     Route: 065
  6. VENETOCLAX [Suspect]
     Active Substance: VENETOCLAX
     Dosage: 50MG/D/28D/C ESCALATED FROM 50 TO 300 MG/D/28D/C
     Route: 065
  7. VENETOCLAX [Suspect]
     Active Substance: VENETOCLAX
     Dosage: 300MG/D/28D/C;ESCALATED FROM 50 TO 300MG/D/28D/C
     Route: 065

REACTIONS (5)
  - Blood disorder [Unknown]
  - Pancytopenia [Not Recovered/Not Resolved]
  - Haematotoxicity [Unknown]
  - Cytopenia [Unknown]
  - Product use in unapproved indication [Unknown]
